FAERS Safety Report 23241177 (Version 1)
Quarter: 2023Q4

REPORT INFORMATION
  Report Type: Spontaneous
  Country: CN (occurrence: CN)
  Receive Date: 20231129
  Receipt Date: 20231129
  Transmission Date: 20240110
  Serious: Yes (Hospitalization, Other)
  Sender: FDA-Public Use
  Company Number: None

PATIENT
  Age: 31 Year
  Sex: Male
  Weight: 68 kg

DRUGS (4)
  1. IFOSFAMIDE [Suspect]
     Active Substance: IFOSFAMIDE
     Indication: Osteosarcoma
     Dosage: 4 G, QD, DILUTED WITH SODIUM CHLORIDE (500 ML)
     Route: 041
     Dates: start: 20231106, end: 20231109
  2. SODIUM CHLORIDE [Suspect]
     Active Substance: SODIUM CHLORIDE
     Indication: Medication dilution
     Dosage: 500 ML, QD, USED TO DILUTE CYCLOPHOSPHAMIDE (4 G)
     Route: 041
     Dates: start: 20231106, end: 20231109
  3. SODIUM CHLORIDE [Suspect]
     Active Substance: SODIUM CHLORIDE
     Dosage: 500 ML, QD, USED TO DILUTE ETOPOSIDE (125 MG)
     Route: 041
     Dates: start: 20231106, end: 20231109
  4. ETOPOSIDE [Suspect]
     Active Substance: ETOPOSIDE
     Indication: Osteosarcoma
     Dosage: 125 MG, QD, DILUTED WITH SODIUM CHLORIDE (500 ML)
     Route: 041
     Dates: start: 20231106, end: 20231109

REACTIONS (1)
  - Myelosuppression [Recovering/Resolving]

NARRATIVE: CASE EVENT DATE: 20231115
